FAERS Safety Report 8485861-1 (Version None)
Quarter: 2012Q3

REPORT INFORMATION
  Report Type: 
  Country: None (occurrence: None)
  Receive Date: 20120703
  Receipt Date: 20120627
  Transmission Date: 20120928
  Serious: Yes (Other)
  Sender: FDA-Public Use
  Company Number: PHHY2011CA51019

PATIENT
  Sex: Female

DRUGS (4)
  1. GILENYA [Suspect]
     Indication: RELAPSING-REMITTING MULTIPLE SCLEROSIS
     Dosage: 0.5 MG, UNK
     Route: 048
     Dates: start: 20110601
  2. PLAQUENIL [Concomitant]
     Dosage: 200 MG, QD
  3. METHOTREXATE [Concomitant]
     Dosage: 15 MG, QW
  4. FOLIC ACID [Concomitant]
     Dosage: 2.5 MG, UNK

REACTIONS (10)
  - MUSCULAR WEAKNESS [None]
  - MICTURITION URGENCY [None]
  - DYSURIA [None]
  - PAIN IN EXTREMITY [None]
  - MULTIPLE SCLEROSIS [None]
  - MUSCULOSKELETAL STIFFNESS [None]
  - DRUG INEFFECTIVE [None]
  - BLADDER DISORDER [None]
  - GAIT DISTURBANCE [None]
  - URINE ODOUR ABNORMAL [None]
